FAERS Safety Report 7776415-0 (Version None)
Quarter: 2011Q3

REPORT INFORMATION
  Report Type: 
  Country: None (occurrence: None)
  Receive Date: 20110926
  Receipt Date: 20110920
  Transmission Date: 20111222
  Serious: Yes (Other)
  Sender: FDA-Public Use
  Company Number: NL-PFIZER INC-2011222619

PATIENT
  Age: 46 Year
  Sex: Female

DRUGS (2)
  1. LYRICA [Suspect]
     Indication: NEURALGIA
     Dosage: 75 MG, 2X/DAY
  2. DICLOFENAC [Concomitant]
     Indication: HEADACHE
     Dosage: 50 MG, 1X/DAY

REACTIONS (11)
  - DYSGEUSIA [None]
  - DIPLOPIA [None]
  - HEADACHE [None]
  - MUSCLE SPASMS [None]
  - MYALGIA [None]
  - FEELING COLD [None]
  - CHEST PAIN [None]
  - NEURALGIA [None]
  - NAUSEA [None]
  - INFLUENZA LIKE ILLNESS [None]
  - DRUG WITHDRAWAL SYNDROME [None]
